FAERS Safety Report 12739900 (Version 1)
Quarter: 2016Q3

REPORT INFORMATION
  Report Type: Spontaneous
  Country: PT (occurrence: PT)
  Receive Date: 20160913
  Receipt Date: 20160913
  Transmission Date: 20161109
  Serious: Yes (Other)
  Sender: FDA-Public Use
  Company Number: PHHY2016PT078923

PATIENT
  Age: 34 Year
  Sex: Female

DRUGS (2)
  1. GLIVEC [Suspect]
     Active Substance: IMATINIB MESYLATE
     Indication: GASTROINTESTINAL STROMAL TUMOUR
     Dosage: 400 MG, QD
     Route: 048
     Dates: start: 20130704
  2. GLIVEC [Suspect]
     Active Substance: IMATINIB MESYLATE
     Dosage: 400 MG, QD
     Route: 048
     Dates: start: 20140212, end: 20160415

REACTIONS (23)
  - Hepatic neoplasm [Unknown]
  - Nausea [Recovered/Resolved]
  - Lymphadenopathy [Unknown]
  - Impaired gastric emptying [Not Recovered/Not Resolved]
  - Oedema peripheral [Recovered/Resolved]
  - Muscle fatigue [Not Recovered/Not Resolved]
  - Vomiting [Recovered/Resolved]
  - Muscle spasms [Recovered/Resolved]
  - Viral infection [Unknown]
  - Thrombocytopenia [Unknown]
  - Liver disorder [Unknown]
  - Pyrexia [Unknown]
  - Somnolence [Unknown]
  - Asthenia [Recovered/Resolved]
  - Abdominal pain upper [Unknown]
  - Neutropenia [Unknown]
  - Periorbital oedema [Unknown]
  - Tendonitis [Not Recovered/Not Resolved]
  - Haemoglobin decreased [Unknown]
  - Fatigue [Not Recovered/Not Resolved]
  - Arthralgia [Not Recovered/Not Resolved]
  - Periorbital oedema [Recovered/Resolved]
  - Pain [Unknown]
